FAERS Safety Report 9363136 (Version 5)
Quarter: 2014Q2

REPORT INFORMATION
  Report Type: Report from Study
  Country: US (occurrence: US)
  Receive Date: 20130624
  Receipt Date: 20140505
  Transmission Date: 20141212
  Serious: Yes (Hospitalization)
  Sender: FDA-Public Use
  Company Number: US-BIOGENIDEC-2013BI054934

PATIENT
  Age: 30 Year
  Sex: Female

DRUGS (2)
  1. AVONEX [Suspect]
     Indication: MULTIPLE SCLEROSIS
     Route: 030
     Dates: start: 201210, end: 201303
  2. AVONEX [Suspect]
     Indication: MULTIPLE SCLEROSIS
     Route: 030
     Dates: start: 20130318

REACTIONS (14)
  - Thrombosis [Recovered/Resolved]
  - Splenomegaly [Unknown]
  - Deep vein thrombosis [Unknown]
  - Gastric bypass [Unknown]
  - Pain [Not Recovered/Not Resolved]
  - Constipation [Unknown]
  - Haemorrhage [Unknown]
  - Varicose vein [Not Recovered/Not Resolved]
  - Gait disturbance [Not Recovered/Not Resolved]
  - Contusion [Recovered/Resolved with Sequelae]
  - Erythema [Recovered/Resolved with Sequelae]
  - Headache [Recovered/Resolved]
  - Influenza like illness [Recovered/Resolved with Sequelae]
  - Paraesthesia [Not Recovered/Not Resolved]
